FAERS Safety Report 5332458-8 (Version None)
Quarter: 2007Q2

REPORT INFORMATION
  Report Type: 
  Country: None (occurrence: None)
  Receive Date: 20070523
  Receipt Date: 20070510
  Transmission Date: 20071010
  Serious: Yes (Hospitalization)
  Sender: FDA-Public Use
  Company Number: FR-ASTRAZENECA-2007CG00733

PATIENT
  Age: 86 Year
  Sex: Female
  Weight: 66 kg

DRUGS (3)
  1. TENORMIN [Suspect]
     Route: 048
     Dates: start: 20070107, end: 20070217
  2. PROPYLTHIOURACILE [Suspect]
     Route: 048
     Dates: start: 20070118, end: 20070212
  3. CELIPROLOL [Suspect]
     Route: 048
     Dates: end: 20070106

REACTIONS (1)
  - VASCULITIS [None]
